FAERS Safety Report 9329786 (Version 1)
Quarter: 2013Q2

REPORT INFORMATION
  Report Type: Spontaneous
  Country: US (occurrence: US)
  Receive Date: 20130604
  Receipt Date: 20130604
  Transmission Date: 20140414
  Serious: No
  Sender: FDA-Public Use
  Company Number: US-SANOFI-AVENTIS-2013SA037172

PATIENT
  Age: 65 Year
  Sex: Male

DRUGS (3)
  1. LANTUS SOLOSTAR [Suspect]
     Indication: TYPE 1 DIABETES MELLITUS
     Dosage: THERAPY START DATE - COUPLE OF YEARS AGO DOSE:20 UNIT(S)
     Route: 051
  2. SOLOSTAR [Suspect]
     Indication: TYPE 1 DIABETES MELLITUS
     Dosage: THERAPY START DATE - COUPLE OF YEARS AGO
  3. INSULIN [Concomitant]

REACTIONS (2)
  - Feeling abnormal [Unknown]
  - Blood glucose decreased [Unknown]
